FAERS Safety Report 15139514 (Version 2)
Quarter: 2018Q3

REPORT INFORMATION
  Report Type: Spontaneous
  Country: GB (occurrence: GB)
  Receive Date: 20180713
  Receipt Date: 20180827
  Transmission Date: 20181010
  Serious: Yes (Life-Threatening, Hospitalization)
  Sender: FDA-Public Use
  Company Number: PHHY2018GB043992

PATIENT
  Age: 20 Year
  Sex: Female
  Weight: 50 kg

DRUGS (1)
  1. DEFERASIROX [Suspect]
     Active Substance: DEFERASIROX
     Indication: IRON OVERLOAD
     Dosage: 20 MG/KG, (29 DAY)
     Route: 048
     Dates: start: 20180228, end: 20180329

REACTIONS (5)
  - Gait disturbance [Not Recovered/Not Resolved]
  - Liver function test abnormal [Recovered/Resolved]
  - Confusional state [Recovered/Resolved]
  - Hepatic encephalopathy [Recovered/Resolved]
  - Coma scale abnormal [Recovered/Resolved]
